FAERS Safety Report 19776901 (Version 5)
Quarter: 2022Q3

REPORT INFORMATION
  Report Type: Spontaneous
  Country: BE (occurrence: BE)
  Receive Date: 20210902
  Receipt Date: 20220817
  Transmission Date: 20221027
  Serious: Yes (Death, Hospitalization)
  Sender: FDA-Public Use
  Company Number: BE-SA-SAC20210826000288

PATIENT
  Age: 77 Year
  Sex: Male

DRUGS (5)
  1. CAMPATH [Suspect]
     Active Substance: ALEMTUZUMAB
     Indication: Thrombocytopenia
  2. CAMPATH [Suspect]
     Active Substance: ALEMTUZUMAB
     Indication: T-cell prolymphocytic leukaemia
  3. MABCAMPATH [Suspect]
     Active Substance: ALEMTUZUMAB
     Indication: T-cell prolymphocytic leukaemia
     Dosage: 30 MG, TID
  4. MABCAMPATH [Suspect]
     Active Substance: ALEMTUZUMAB
     Dosage: SCHEDULE: 3-10-30
  5. MABCAMPATH [Suspect]
     Active Substance: ALEMTUZUMAB
     Dosage: 30 MG, TIW
     Route: 042
     Dates: start: 20210726, end: 20211022

REACTIONS (4)
  - Disease progression [Fatal]
  - General physical health deterioration [Unknown]
  - Disease recurrence [Not Recovered/Not Resolved]
  - Off label use [Unknown]

NARRATIVE: CASE EVENT DATE: 20220214
